FAERS Safety Report 8332334-2 (Version None)
Quarter: 2012Q2

REPORT INFORMATION
  Report Type: 
  Country: None (occurrence: None)
  Receive Date: 20120503
  Receipt Date: 20120423
  Transmission Date: 20120825
  Serious: Yes (Other)
  Sender: FDA-Public Use
  Company Number: CZ-AMGEN-CZESP2012018069

PATIENT
  Age: 33 Year
  Sex: Female

DRUGS (3)
  1. OMEPRAZOLE [Concomitant]
     Dosage: UNK
  2. ENBREL [Suspect]
     Dosage: UNK
     Dates: start: 20110601
  3. AULIN [Concomitant]
     Dosage: UNK

REACTIONS (1)
  - POLYNEUROPATHY [None]
